FAERS Safety Report 12616750 (Version 3)
Quarter: 2020Q3

REPORT INFORMATION
  Report Type: Spontaneous
  Country: US (occurrence: US)
  Receive Date: 20160802
  Receipt Date: 20200827
  Transmission Date: 20201102
  Serious: Yes (Hospitalization, Other)
  Sender: FDA-Public Use
  Company Number: US-TEVA-680308USA

PATIENT
  Age: 28 Year
  Sex: Female

DRUGS (3)
  1. PHENOXYMETHYLPENICILLIN POTASSIUM [PENICILLIN V POTASSIUM] [Suspect]
     Active Substance: PENICILLIN V POTASSIUM
     Indication: PHARYNGITIS STREPTOCOCCAL
     Route: 065
  2. MULTIVITAMIN [Concomitant]
     Active Substance: VITAMINS
     Route: 065
  3. FISH OIL [Concomitant]
     Active Substance: FISH OIL
     Route: 065

REACTIONS (9)
  - Toxic epidermal necrolysis [Recovered/Resolved with Sequelae]
  - Caesarean section [Unknown]
  - Stevens-Johnson syndrome [Recovered/Resolved with Sequelae]
  - Oesophageal stenosis [Unknown]
  - Trichiasis [Unknown]
  - Maternal exposure during pregnancy [Recovered/Resolved]
  - Normal newborn [Unknown]
  - Obstructive airways disorder [Recovering/Resolving]
  - Urogenital disorder [Unknown]
